FAERS Safety Report 22197659 (Version 1)
Quarter: 2023Q2

REPORT INFORMATION
  Report Type: Spontaneous
  Country: US (occurrence: US)
  Receive Date: 20230411
  Receipt Date: 20230411
  Transmission Date: 20230722
  Serious: No
  Sender: FDA-Public Use
  Company Number: US-PERRIGO-22US015708

PATIENT
  Age: 2 Year
  Sex: Male
  Weight: 15.873 kg

DRUGS (2)
  1. ACETAMINOPHEN [Suspect]
     Active Substance: ACETAMINOPHEN
     Indication: Pyrexia
     Dosage: 120 MG, EVERY FOUR HOURS FIVE TIMES A DAY
     Route: 054
     Dates: start: 20221127, end: 20221128
  2. IBUPROFEN FOR CHILDREN [IBUPROFEN SODIUM] [Concomitant]
     Indication: Pyrexia
     Dosage: UNK
     Route: 065
     Dates: start: 20221127, end: 20221129

REACTIONS (2)
  - Rash [Not Recovered/Not Resolved]
  - Product administered to patient of inappropriate age [Recovered/Resolved]

NARRATIVE: CASE EVENT DATE: 20221127
